FAERS Safety Report 7547342-9 (Version None)
Quarter: 2011Q2

REPORT INFORMATION
  Report Type: 
  Country: None (occurrence: None)
  Receive Date: 20110614
  Receipt Date: 20110531
  Transmission Date: 20111010
  Serious: Yes (Hospitalization, Other)
  Sender: FDA-Public Use
  Company Number: US-ELI_LILLY_AND_COMPANY-US201009002050

PATIENT
  Sex: Female

DRUGS (7)
  1. FORTEO [Suspect]
     Indication: OSTEOPOROSIS
     Dosage: 20 UG, DAILY (1/D)
     Dates: start: 20100813
  2. FORTEO [Suspect]
     Dosage: 20 UG, DAILY (1/D)
  3. PROZAC [Concomitant]
  4. VITAMIN TAB [Concomitant]
  5. TETANUS VACCINE [Concomitant]
  6. PREDNISONE [Concomitant]
  7. FORTEO [Suspect]
     Dosage: 20 UG, QD

REACTIONS (13)
  - MUSCULOSKELETAL STIFFNESS [None]
  - DRUG DOSE OMISSION [None]
  - DYSPNOEA [None]
  - BONE PAIN [None]
  - CHEST PAIN [None]
  - VACCINATION COMPLICATION [None]
  - PAIN [None]
  - PLEURISY [None]
  - CHONDROCALCINOSIS PYROPHOSPHATE [None]
  - PAIN IN EXTREMITY [None]
  - HYPERHIDROSIS [None]
  - HEART RATE IRREGULAR [None]
  - ARTHRALGIA [None]
